FAERS Safety Report 5014472-5 (Version None)
Quarter: 2006Q2

REPORT INFORMATION
  Report Type: 
  Country: None (occurrence: None)
  Receive Date: 20060531
  Receipt Date: 20060517
  Transmission Date: 20061013
  Serious: Yes (Hospitalization)
  Sender: FDA-Public Use
  Company Number: CH-JNJFOC-20060505957

PATIENT
  Age: 75 Year
  Sex: Female

DRUGS (7)
  1. TRAMADOL HCL [Suspect]
     Indication: PAIN
     Route: 048
  2. MORPHINE [Interacting]
     Indication: PAIN
     Route: 058
  3. SEROPRAM [Interacting]
     Indication: DRUG USE FOR UNKNOWN INDICATION
     Route: 048
  4. EUTHYROX [Concomitant]
     Route: 048
  5. CIBACEN [Concomitant]
     Route: 048
  6. STILNOX [Concomitant]
     Route: 048
  7. LIQUAEMIN INJ [Concomitant]
     Route: 065

REACTIONS (11)
  - ANURIA [None]
  - CONFUSIONAL STATE [None]
  - DEPRESSED LEVEL OF CONSCIOUSNESS [None]
  - DRUG INTERACTION [None]
  - HYPERREFLEXIA [None]
  - HYPOTENSION [None]
  - METABOLIC ACIDOSIS [None]
  - MIOSIS [None]
  - PYREXIA [None]
  - RHABDOMYOLYSIS [None]
  - SEROTONIN SYNDROME [None]
